FAERS Safety Report 10035872 (Version 4)
Quarter: 2014Q2

REPORT INFORMATION
  Report Type: Spontaneous
  Country: GB (occurrence: GB)
  Receive Date: 20140325
  Receipt Date: 20140430
  Transmission Date: 20141212
  Serious: Yes (Other)
  Sender: FDA-Public Use
  Company Number: GB-PFIZER INC-2014081869

PATIENT
  Age: 49 Year
  Sex: Female

DRUGS (7)
  1. HYDROCORTISONE SODIUM SUCCINATE [Suspect]
     Indication: PREMEDICATION
     Dosage: 100 MG, UNK
     Route: 042
     Dates: start: 20140204
  2. RITUXIMAB [Suspect]
     Indication: RHEUMATIC DISORDER
     Dosage: 1000 MG, UNK
     Route: 042
     Dates: start: 20140204, end: 20140204
  3. SODIUM CHLORIDE [Suspect]
     Indication: RHEUMATIC DISORDER
     Dosage: 500 ML, UNK
     Route: 042
     Dates: start: 20140204, end: 20140204
  4. SODIUM CHLORIDE [Suspect]
     Indication: MEDICATION DILUTION
  5. CHLORPHENAMINE [Concomitant]
     Indication: PREMEDICATION
     Dosage: 10 MG, UNK
     Route: 042
     Dates: start: 20140204
  6. CHLORPHENAMINE [Concomitant]
     Indication: ADVERSE REACTION
  7. PARACETAMOL [Concomitant]
     Indication: PREMEDICATION
     Dosage: 1G, UNK
     Route: 048
     Dates: start: 20140204

REACTIONS (3)
  - Headache [Recovered/Resolved with Sequelae]
  - Throat irritation [Recovered/Resolved with Sequelae]
  - Chest discomfort [Recovered/Resolved with Sequelae]
